FAERS Safety Report 9902287 (Version 2)
Quarter: 2014Q2

REPORT INFORMATION
  Report Type: Spontaneous
  Country: DK (occurrence: DK)
  Receive Date: 20140217
  Receipt Date: 20140523
  Transmission Date: 20141212
  Serious: Yes (Other)
  Sender: FDA-Public Use
  Company Number: DK-PFIZER INC-2014040681

PATIENT
  Age: 27 Year
  Sex: Female

DRUGS (4)
  1. MINPROSTIN [Suspect]
     Indication: LABOUR INDUCTION
     Dosage: 3 MG, TWO TIMES
     Route: 067
     Dates: start: 20000221, end: 20000221
  2. MINPROSTIN [Suspect]
     Dosage: 3 MG, TWO TIMES
     Route: 067
     Dates: start: 20000222, end: 20000222
  3. MINPROSTIN [Suspect]
     Dosage: 3 MG, ONCE
     Route: 067
     Dates: start: 20000224, end: 20000224
  4. SYNTOCINON [Suspect]
     Indication: LABOUR INDUCTION
     Dosage: STRENGTH: 10 IE/ML.
     Route: 042
     Dates: start: 20000224, end: 20000225

REACTIONS (3)
  - Incorrect dose administered [Recovered/Resolved]
  - Complication of pregnancy [Recovered/Resolved]
  - Caesarean section [Recovered/Resolved]
